FAERS Safety Report 5401296-X (Version None)
Quarter: 2007Q3

REPORT INFORMATION
  Report Type: 
  Country: None (occurrence: None)
  Receive Date: 20070731
  Receipt Date: 20070719
  Transmission Date: 20080115
  Serious: Yes (Hospitalization)
  Sender: FDA-Public Use
  Company Number: DE-PURDUE-DEU_2007_0003507

PATIENT
  Age: 46 Year
  Sex: Male

DRUGS (1)
  1. OXY/NALOX CR TABS VS OXY CR TABS [Suspect]
     Indication: PAIN
     Route: 048

REACTIONS (2)
  - FALL [None]
  - MUSCLE RUPTURE [None]
